FAERS Safety Report 23447203 (Version 1)
Quarter: 2024Q1

REPORT INFORMATION
  Report Type: Spontaneous
  Country: BR (occurrence: BR)
  Receive Date: 20240126
  Receipt Date: 20240126
  Transmission Date: 20240410
  Serious: Yes (Other)
  Sender: FDA-Public Use
  Company Number: BR-TAKEDA-2024TUS007374

PATIENT
  Sex: Female
  Weight: 75 kg

DRUGS (1)
  1. MESALAMINE [Suspect]
     Active Substance: MESALAMINE
     Indication: Colitis
     Dosage: UNK UNK, QD
     Route: 065
     Dates: start: 20231030

REACTIONS (5)
  - Infection [Unknown]
  - Product physical issue [Unknown]
  - Poor quality product administered [Unknown]
  - Malaise [Unknown]
  - Abdominal pain [Unknown]
